FAERS Safety Report 8017916-X (Version None)
Quarter: 2012Q1

REPORT INFORMATION
  Report Type: 
  Country: None (occurrence: None)
  Receive Date: 20120103
  Receipt Date: 20111226
  Transmission Date: 20120608
  Serious: Yes (Other)
  Sender: FDA-Public Use
  Company Number: JP-JNJFOC-20111013271

PATIENT
  Age: 75 Year
  Sex: Female

DRUGS (5)
  1. REMICADE [Suspect]
     Dosage: 9TH DOSE
     Route: 042
     Dates: start: 20110830
  2. REMICADE [Suspect]
     Dosage: 9TH DOSE
     Route: 042
     Dates: start: 20111220
  3. UNKNOWN ADRENAL HORMONE PREPARATIONS [Concomitant]
     Route: 065
  4. ANTI-ASTHMATICS [Concomitant]
     Route: 048
  5. REMICADE [Suspect]
     Indication: PSORIASIS
     Route: 042
     Dates: start: 20100705

REACTIONS (2)
  - PNEUMONIA MYCOPLASMAL [None]
  - ASTHMA [None]
